FAERS Safety Report 8382777-6 (Version None)
Quarter: 2012Q2

REPORT INFORMATION
  Report Type: 
  Country: None (occurrence: None)
  Receive Date: 20120524
  Receipt Date: 20120510
  Transmission Date: 20120825
  Serious: Yes (Other)
  Sender: FDA-Public Use
  Company Number: CA-JNJFOC-20120510533

PATIENT
  Sex: Female
  Weight: 60.2 kg

DRUGS (3)
  1. DEXILANT [Concomitant]
     Route: 048
  2. REMICADE [Suspect]
     Dosage: 31ST TREATMENT
     Route: 042
     Dates: start: 20120510
  3. REMICADE [Suspect]
     Indication: CROHN'S DISEASE
     Route: 042

REACTIONS (1)
  - DIVERTICULITIS [None]
